FAERS Safety Report 23871417 (Version 1)
Quarter: 2024Q2

REPORT INFORMATION
  Report Type: Report from Study
  Country: NL (occurrence: NL)
  Receive Date: 20240519
  Receipt Date: 20240519
  Transmission Date: 20240716
  Serious: Yes (Death)
  Sender: FDA-Public Use
  Company Number: NL-ABBVIE-5765410

PATIENT
  Age: 71 Year
  Sex: Male

DRUGS (5)
  1. CARBIDOPA\LEVODOPA [Suspect]
     Active Substance: CARBIDOPA\LEVODOPA
     Indication: Parkinson^s disease
     Route: 050
     Dates: start: 20170912
  2. CARBIDOPA\LEVODOPA [Suspect]
     Active Substance: CARBIDOPA\LEVODOPA
     Dosage: MD:9.0ML; CD:4.5ML/H; ED:1.8ML?DURATION TEXT: REMAINS AT 24 HOURS
     Route: 050
     Dates: start: 20231221, end: 20240430
  3. CARBIDOPA\LEVODOPA [Suspect]
     Active Substance: CARBIDOPA\LEVODOPA
     Dosage: MD:8.0ML; CD:4.5ML/H; ED:1.8ML; NCD:3.0ML/H; NED:1.0ML?DURATION TEXT: REMAINS AT 24 HOURS
     Route: 050
     Dates: start: 20240430, end: 20240513
  4. BENSERAZIDE HYDROCHLORIDE\LEVODOPA [Concomitant]
     Active Substance: BENSERAZIDE HYDROCHLORIDE\LEVODOPA
     Indication: Product used for unknown indication
     Dosage: FORM STRENGTH 125 MILLIGRAM
  5. SINEMET CR [Concomitant]
     Active Substance: CARBIDOPA\LEVODOPA
     Indication: Product used for unknown indication
     Dosage: FORM STRENGTH 125 MILLIGRAM

REACTIONS (2)
  - Parkinson^s disease [Fatal]
  - Dementia [Fatal]
